FAERS Safety Report 6679376-0 (Version None)
Quarter: 2010Q2

REPORT INFORMATION
  Report Type: 
  Country: None (occurrence: None)
  Receive Date: 20100413
  Receipt Date: 20100316
  Transmission Date: 20101027
  Serious: Yes (Hospitalization)
  Sender: FDA-Public Use
  Company Number: ES-ROCHE-624247

PATIENT
  Sex: Female
  Weight: 60.5 kg

DRUGS (17)
  1. CAPECITABINE [Suspect]
     Route: 048
     Dates: start: 20070221, end: 20070415
  2. CAPECITABINE [Suspect]
     Route: 048
     Dates: start: 20070430
  3. CAPECITABINE [Suspect]
     Dosage: FREQUENCY:DAILY FOR 14 DAYS.DOSE LOWERED
     Route: 048
     Dates: start: 20070522
  4. BEVACIZUMAB [Suspect]
     Route: 042
     Dates: start: 20070221, end: 20070414
  5. BEVACIZUMAB [Suspect]
     Route: 042
     Dates: start: 20070430
  6. ERLOTINIB [Suspect]
     Dosage: EVERYDAY DURING THREE WEEKS
     Route: 048
     Dates: start: 20070926, end: 20080228
  7. OXALIPLATIN [Suspect]
     Route: 042
     Dates: start: 20070221, end: 20070414
  8. OXALIPLATIN [Suspect]
     Route: 042
     Dates: start: 20070430
  9. OXALIPLATIN [Suspect]
     Dosage: DOSE LOWERED
     Route: 042
     Dates: start: 20070522
  10. COZAAR [Concomitant]
     Dosage: DRUG NAME: COZAAR 50
     Dates: start: 20060101
  11. ZOCOR [Concomitant]
     Dosage: DRUG REPORTED: ZOCOR 20
     Dates: start: 20061001
  12. OMEPRAZOLE [Concomitant]
  13. ACETAMINOPHEN [Concomitant]
  14. ADOLONTA [Concomitant]
  15. COZAAR [Concomitant]
     Dates: start: 20061001
  16. LORAZEPAM [Concomitant]
     Dates: start: 20070201
  17. PANTOPRAZOLE [Concomitant]
     Dates: start: 20061001

REACTIONS (6)
  - ACUTE PRERENAL FAILURE [None]
  - ENTERITIS [None]
  - INFECTION [None]
  - NEUTROPENIA [None]
  - PANCREATITIS ACUTE [None]
  - PYREXIA [None]
